FAERS Safety Report 7188454-1 (Version None)
Quarter: 2010Q4

REPORT INFORMATION
  Report Type: 
  Country: None (occurrence: None)
  Receive Date: 20101222
  Receipt Date: 20100720
  Transmission Date: 20110411
  Serious: No
  Sender: FDA-Public Use
  Company Number: US-AMGEN-KDL425903

PATIENT

DRUGS (2)
  1. ENBREL [Suspect]
     Indication: PSORIATIC ARTHROPATHY
     Dosage: 25 MG, UNK
     Route: 058
     Dates: start: 20040929
  2. ENBREL [Suspect]
     Indication: PSORIASIS

REACTIONS (3)
  - NAIL DYSTROPHY [None]
  - PNEUMONIA [None]
  - THERAPEUTIC RESPONSE DECREASED [None]
